FAERS Safety Report 7462328-0 (Version None)
Quarter: 2011Q2

REPORT INFORMATION
  Report Type: 
  Country: None (occurrence: None)
  Receive Date: 20110506
  Receipt Date: 20110427
  Transmission Date: 20111010
  Serious: Yes (Other)
  Sender: FDA-Public Use
  Company Number: US-B.I. PHARMACEUTICALS,INC./RIDGEFIELD-2011-BP-11970BP

PATIENT
  Sex: Female

DRUGS (1)
  1. MIRAPEX [Suspect]
     Indication: RESTLESS LEGS SYNDROME
     Dates: start: 19970701

REACTIONS (13)
  - OBSESSIVE-COMPULSIVE DISORDER [None]
  - BIPOLAR DISORDER [None]
  - SUICIDE ATTEMPT [None]
  - COMPULSIVE SHOPPING [None]
  - IMPULSE-CONTROL DISORDER [None]
  - DEPRESSION [None]
  - HYPERSEXUALITY [None]
  - EMOTIONAL DISTRESS [None]
  - INSOMNIA [None]
  - PATHOLOGICAL GAMBLING [None]
  - PAIN [None]
  - COMPULSIVE SEXUAL BEHAVIOUR [None]
  - SEXUALLY TRANSMITTED DISEASE [None]
